FAERS Safety Report 7829164-4 (Version None)
Quarter: 2011Q4

REPORT INFORMATION
  Report Type: 
  Country: None (occurrence: None)
  Receive Date: 20111020
  Receipt Date: 20111013
  Transmission Date: 20120403
  Serious: Yes (Other)
  Sender: FDA-Public Use
  Company Number: PHHY2011FR91102

PATIENT
  Sex: Female

DRUGS (1)
  1. ZOLEDRONOC ACID [Suspect]
     Indication: OSTEOPOROSIS
     Dosage: UNK UKN, UNK
     Route: 042

REACTIONS (11)
  - ERYTHEMA NODOSUM [None]
  - C-REACTIVE PROTEIN INCREASED [None]
  - TONGUE COATED [None]
  - TUBERCULIN TEST POSITIVE [None]
  - CONJUNCTIVITIS [None]
  - CONJUNCTIVAL HYPERAEMIA [None]
  - PAIN [None]
  - NODULE [None]
  - OEDEMA PERIPHERAL [None]
  - INFLUENZA [None]
  - NAUSEA [None]
